FAERS Safety Report 15707558 (Version 2)
Quarter: 2018Q4

REPORT INFORMATION
  Report Type: Report from Study
  Country: US (occurrence: US)
  Receive Date: 20181211
  Receipt Date: 20181220
  Transmission Date: 20190205
  Serious: Yes (Other)
  Sender: FDA-Public Use
  Company Number: US-AMGEN-USASL2018165891

PATIENT
  Age: 62 Year
  Sex: Female
  Weight: 62.13 kg

DRUGS (2)
  1. REPATHA [Suspect]
     Active Substance: EVOLOCUMAB
     Indication: PRODUCT USED FOR UNKNOWN INDICATION
     Dosage: 140 MG, Q2WK
     Route: 065
     Dates: start: 201809, end: 2018
  2. REPATHA [Suspect]
     Active Substance: EVOLOCUMAB
     Dosage: 420 MG, QMO
     Route: 065
     Dates: start: 2018

REACTIONS (9)
  - Generalised oedema [Recovering/Resolving]
  - Blood pressure increased [Recovering/Resolving]
  - Urinary tract infection [Unknown]
  - Blepharitis [Unknown]
  - Sinusitis [Recovering/Resolving]
  - Dyspepsia [Recovering/Resolving]
  - Mental impairment [Unknown]
  - Myalgia [Recovering/Resolving]
  - Abdominal pain [Unknown]

NARRATIVE: CASE EVENT DATE: 20181123
